FAERS Safety Report 9348424 (Version 1)
Quarter: 2013Q2

REPORT INFORMATION
  Report Type: Report from Study
  Country: CA (occurrence: CA)
  Receive Date: 20130614
  Receipt Date: 20130614
  Transmission Date: 20140414
  Serious: Yes (Death)
  Sender: FDA-Public Use
  Company Number: CA-BRISTOL-MYERS SQUIBB COMPANY-18984542

PATIENT
  Age: 59 Year
  Sex: Female

DRUGS (11)
  1. ORENCIA [Suspect]
     Indication: RHEUMATOID ARTHRITIS
     Dosage: 750 UNIT NOS
     Dates: start: 201105
  2. METFORMIN [Concomitant]
  3. GLUCONORM [Concomitant]
  4. PLAQUENIL [Concomitant]
  5. PREDNISONE [Concomitant]
  6. FOLIC ACID [Concomitant]
  7. METHOTREXATE [Concomitant]
  8. PANTOLOC [Concomitant]
  9. HYZAAR [Concomitant]
  10. ACTONEL [Concomitant]
  11. CALCIUM [Concomitant]

REACTIONS (3)
  - Skin cancer [Fatal]
  - Non-Hodgkin^s lymphoma [Fatal]
  - Metastases to central nervous system [Fatal]
